FAERS Safety Report 7943394-2 (Version None)
Quarter: 2011Q4

REPORT INFORMATION
  Report Type: 
  Country: None (occurrence: None)
  Receive Date: 20111128
  Receipt Date: 20111121
  Transmission Date: 20120403
  Serious: Yes (Other)
  Sender: FDA-Public Use
  Company Number: US-TEVA-310142USA

PATIENT
  Age: 5 Year

DRUGS (1)
  1. MERCAPTOPURINE [Suspect]
     Dosage: 305  MG/M2 OVER 9 DAY PERIOD

REACTIONS (3)
  - OVERDOSE [None]
  - PANCYTOPENIA [None]
  - HEPATITIS [None]
